FAERS Safety Report 17750463 (Version 1)
Quarter: 2020Q2

REPORT INFORMATION
  Report Type: Spontaneous
  Country: US (occurrence: US)
  Receive Date: 20200505
  Receipt Date: 20200505
  Transmission Date: 20200714
  Serious: Yes (Hospitalization)
  Sender: FDA-Public Use
  Company Number: None

PATIENT
  Age: 48 Year
  Sex: Male

DRUGS (8)
  1. SEVELAMER [Concomitant]
     Active Substance: SEVELAMER
  2. ATORVASTATIN [Concomitant]
     Active Substance: ATORVASTATIN
  3. EPCLUSA [Suspect]
     Active Substance: SOFOSBUVIR\VELPATASVIR
     Indication: CHRONIC HEPATITIS C
     Dosage: OTHER DOSE:400-100MG;?
     Route: 048
  4. CARVEDILOL. [Concomitant]
     Active Substance: CARVEDILOL
  5. NIFEDIPINE. [Concomitant]
     Active Substance: NIFEDIPINE
  6. FAMOTIDINE. [Concomitant]
     Active Substance: FAMOTIDINE
  7. CALCITRIOL. [Concomitant]
     Active Substance: CALCITRIOL
  8. TELMISARTAN. [Concomitant]
     Active Substance: TELMISARTAN

REACTIONS (1)
  - Pulmonary oedema [None]
